FAERS Safety Report 4643056-3 (Version None)
Quarter: 2005Q2

REPORT INFORMATION
  Report Type: 
  Country: None (occurrence: None)
  Receive Date: 20050421
  Receipt Date: 20050408
  Transmission Date: 20051028
  Serious: Yes (Death)
  Sender: FDA-Public Use
  Company Number: 2005057315

PATIENT
  Age: 59 Year
  Sex: Male

DRUGS (2)
  1. SULPERAZONE (SULBACTAM, CEFOPERAZONE) [Suspect]
     Indication: LOWER RESPIRATORY TRACT INFECTION
     Dosage: 4.5 GRAM (1.5 GRAM, 1 IN 8 HR), INTRAVENOUS
     Route: 042
  2. ATROPINE [Concomitant]

REACTIONS (3)
  - BLOOD PRESSURE INCREASED [None]
  - CEREBROVASCULAR ACCIDENT [None]
  - DRUG INEFFECTIVE [None]
